FAERS Safety Report 22937119 (Version 2)
Quarter: 2023Q4

REPORT INFORMATION
  Report Type: Spontaneous
  Country: US (occurrence: None)
  Receive Date: 20230913
  Receipt Date: 20231031
  Transmission Date: 20240110
  Serious: Yes (Other)
  Sender: FDA-Public Use
  Company Number: US-ARIS GLOBAL-AXS202308-001082

PATIENT
  Age: 62 Year
  Sex: Female

DRUGS (2)
  1. AUVELITY [Suspect]
     Active Substance: BUPROPION HYDROCHLORIDE\DEXTROMETHORPHAN HYDROBROMIDE
     Indication: Product used for unknown indication
     Route: 048
     Dates: start: 202308, end: 202308
  2. AUVELITY [Suspect]
     Active Substance: BUPROPION HYDROCHLORIDE\DEXTROMETHORPHAN HYDROBROMIDE
     Route: 048
     Dates: start: 202308, end: 202308

REACTIONS (2)
  - Seizure like phenomena [Recovered/Resolved]
  - Unresponsive to stimuli [Recovered/Resolved]

NARRATIVE: CASE EVENT DATE: 20230801
